FAERS Safety Report 5449865-5 (Version None)
Quarter: 2007Q3

REPORT INFORMATION
  Report Type: 
  Country: None (occurrence: None)
  Receive Date: 20070907
  Receipt Date: 20070830
  Transmission Date: 20080115
  Serious: No
  Sender: FDA-Public Use
  Company Number: 163-21880-07081961

PATIENT
  Age: 70 Year
  Sex: Male

DRUGS (2)
  1. REVLIMID [Suspect]
     Indication: MULTIPLE MYELOMA
     Dosage: 10 MG, X15 DAYS, ORAL, 25 MG, X15 DAYS, ORAL
     Route: 048
     Dates: start: 20060605
  2. REVLIMID [Suspect]
     Indication: MULTIPLE MYELOMA
     Dosage: 10 MG, X15 DAYS, ORAL, 25 MG, X15 DAYS, ORAL
     Route: 048
     Dates: start: 20060828

REACTIONS (8)
  - ANOREXIA [None]
  - BONE PAIN [None]
  - CATARACT OPERATION [None]
  - FATIGUE [None]
  - MALAISE [None]
  - NEUROPATHY [None]
  - PLATELET COUNT DECREASED [None]
  - WHITE BLOOD CELL COUNT DECREASED [None]
